FAERS Safety Report 11646851 (Version 2)
Quarter: 2015Q4

REPORT INFORMATION
  Report Type: Spontaneous
  Country: US (occurrence: US)
  Receive Date: 20151020
  Receipt Date: 20151126
  Transmission Date: 20160304
  Serious: Yes (Other)
  Sender: FDA-Public Use
  Company Number: US-ROCHE-ITM201504IM014867

PATIENT
  Sex: Female
  Weight: 131 kg

DRUGS (1)
  1. ESBRIET [Suspect]
     Active Substance: PIRFENIDONE
     Indication: IDIOPATHIC PULMONARY FIBROSIS
     Route: 048
     Dates: start: 20150427

REACTIONS (13)
  - Drug intolerance [Unknown]
  - Decreased appetite [Unknown]
  - Rash pruritic [Unknown]
  - Back pain [Unknown]
  - Erythema [Unknown]
  - Depression [Unknown]
  - Fatigue [Unknown]
  - Rash [Unknown]
  - Dyspnoea [Unknown]
  - Dysgeusia [Unknown]
  - Weight decreased [Unknown]
  - Drug dose omission [Unknown]
  - Asthenia [Unknown]
